FAERS Safety Report 10038087 (Version 1)
Quarter: 2014Q1

REPORT INFORMATION
  Report Type: Spontaneous
  Country: BE (occurrence: BE)
  Receive Date: 20140326
  Receipt Date: 20140326
  Transmission Date: 20141002
  Serious: Yes (Other)
  Sender: FDA-Public Use
  Company Number: PHHY2014BE035695

PATIENT
  Age: 40 Year
  Sex: Female
  Weight: 53 kg

DRUGS (1)
  1. MIACALCIC [Suspect]
     Indication: COMPLEX REGIONAL PAIN SYNDROME
     Dosage: 50 IU, QW5
     Route: 065
     Dates: start: 20140218, end: 20140225

REACTIONS (11)
  - Depression [Recovering/Resolving]
  - Suicidal ideation [Recovering/Resolving]
  - Weight decreased [Recovering/Resolving]
  - Hyperhidrosis [Recovering/Resolving]
  - Malaise [Recovering/Resolving]
  - Syncope [Recovering/Resolving]
  - Aphagia [Recovering/Resolving]
  - Eructation [Recovering/Resolving]
  - Dizziness [Recovering/Resolving]
  - Tremor [Recovering/Resolving]
  - Flushing [Recovering/Resolving]
